FAERS Safety Report 16600724 (Version 1)
Quarter: 2019Q3

REPORT INFORMATION
  Report Type: Spontaneous
  Country: DE (occurrence: DE)
  Receive Date: 20190720
  Receipt Date: 20190720
  Transmission Date: 20191004
  Serious: Yes (Hospitalization)
  Sender: FDA-Public Use
  Company Number: DE-ACCORD-138993

PATIENT
  Age: 63 Year
  Sex: Male
  Weight: 73 kg

DRUGS (15)
  1. NALOXONE HYDROCHLORIDE/TILIDINE HYDROCHLORIDE [Concomitant]
     Dosage: 100 / 8 MG, 1-0-0-0, SUSTAINED-RELEASE TABLETS
     Route: 048
  2. MOVICOL [Concomitant]
     Active Substance: POLYETHYLENE GLYCOL 3350\POTASSIUM CHLORIDE\SODIUM BICARBONATE\SODIUM CHLORIDE
     Dosage: 13.125 / 0.35 / 0.18 / 0.05 G, 2-0-0-0, SACHETS
     Route: 048
  3. CIPROFLOXACIN. [Concomitant]
     Active Substance: CIPROFLOXACIN
     Dosage: 500 MG, SCHEME, TABLETS
     Route: 048
  4. NOVALGIN (METAMIZOLE SODIUM) [Concomitant]
     Active Substance: METAMIZOLE SODIUM
     Dosage: 40 GTT, 1-1-1-1, DROPS
     Route: 048
  5. CISPLATIN. [Suspect]
     Active Substance: CISPLATIN
     Indication: PRODUCT USED FOR UNKNOWN INDICATION
     Dosage: 100 MG / SQ M, SCHEME
     Route: 042
  6. FLUOROURACIL. [Suspect]
     Active Substance: FLUOROURACIL
     Indication: PRODUCT USED FOR UNKNOWN INDICATION
     Dosage: 1000 MG PER SQ M
     Route: 042
  7. AMPHO-MORONAL [Concomitant]
     Active Substance: AMPHOTERICIN B
     Dosage: 10 MG, SCHEME, LOZENGES
     Route: 048
  8. FRESUBIN [Concomitant]
     Active Substance: AMINO ACIDS\DEXTROSE\ELECTROLYTES NOS\SOYBEAN OIL\VITAMINS
     Dosage: 1 BOTTLE, 1-1-1-1, LIQUID FOOD
     Route: 048
  9. CAPHOSOL [Concomitant]
     Active Substance: CALCIUM CHLORIDE\SODIUM CHLORIDE\SODIUM PHOSPHATE, DIBASIC, ANHYDROUS\SODIUM PHOSPHATE, MONOBASIC, ANHYDROUS
     Dosage: 7.8/4.8/1.35 MG, 1-1-1-1, MOUTHWASH SOLUTION
     Route: 061
  10. BENZOCAINE. [Concomitant]
     Active Substance: BENZOCAINE
     Dosage: 1-1-1-0, MOUTHWASH SOLUTION
     Route: 061
  11. POTASSIUM [Concomitant]
     Active Substance: POTASSIUM
     Dosage: 1 SACHET, 2-2-2-0, SACHET
     Route: 048
  12. PANTOPRAZOLE [Concomitant]
     Active Substance: PANTOPRAZOLE
     Dosage: 40 MG, 1-0-0-0, TABLET
     Route: 048
  13. CETUXIMAB. [Suspect]
     Active Substance: CETUXIMAB
     Indication: PRODUCT USED FOR UNKNOWN INDICATION
     Dosage: 250 MG PER SQ M
     Route: 042
  14. ONDANSETRON [Concomitant]
     Active Substance: ONDANSETRON
     Dosage: 8 MG, SCHEME, TABLETS
     Route: 048
  15. LEVOTHYROXINE. [Concomitant]
     Active Substance: LEVOTHYROXINE
     Dosage: 50 UG, 1-0-0-0, TABLET
     Route: 048

REACTIONS (6)
  - Weight decreased [Unknown]
  - Electrolyte imbalance [Unknown]
  - Dyspnoea [Unknown]
  - Mucosal inflammation [Unknown]
  - Musculoskeletal pain [Unknown]
  - General physical health deterioration [Unknown]
